FAERS Safety Report 23978524 (Version 1)
Quarter: 2024Q2

REPORT INFORMATION
  Report Type: Spontaneous
  Country: US (occurrence: US)
  Receive Date: 20240614
  Receipt Date: 20240614
  Transmission Date: 20240715
  Serious: Yes (Other)
  Sender: FDA-Public Use
  Company Number: US-ELI_LILLY_AND_COMPANY-US202406002611

PATIENT
  Age: 73 Year
  Sex: Female

DRUGS (6)
  1. HUMALOG [Suspect]
     Active Substance: INSULIN LISPRO
     Dosage: 17 U, BID
     Route: 065
  2. HUMALOG [Suspect]
     Active Substance: INSULIN LISPRO
     Dosage: 17 U, BID
     Route: 065
  3. HUMALOG [Suspect]
     Active Substance: INSULIN LISPRO
     Dosage: 17 U, BID
     Route: 065
     Dates: start: 1994
  4. HUMALOG [Suspect]
     Active Substance: INSULIN LISPRO
     Dosage: 17 U, BID
     Route: 065
     Dates: start: 1994
  5. HUMALOG [Suspect]
     Active Substance: INSULIN LISPRO
     Dosage: 17 U, BID
     Route: 065
     Dates: start: 1994
  6. LANTUS [Concomitant]
     Active Substance: INSULIN GLARGINE
     Indication: Diabetes mellitus

REACTIONS (2)
  - Diabetic glaucoma [Unknown]
  - Incorrect dose administered [Unknown]

NARRATIVE: CASE EVENT DATE: 20140101
